FAERS Safety Report 19004766 (Version 2)
Quarter: 2021Q2

REPORT INFORMATION
  Report Type: Report from Study
  Country: CN (occurrence: CN)
  Receive Date: 20210312
  Receipt Date: 20210624
  Transmission Date: 20210717
  Serious: Yes (Hospitalization)
  Sender: FDA-Public Use
  Company Number: CN-ASTRAZENECA-2020SE94654

PATIENT
  Age: 18152 Day
  Sex: Female

DRUGS (60)
  1. DURVALUMAB. [Suspect]
     Active Substance: DURVALUMAB
     Indication: CERVIX CARCINOMA
     Route: 042
     Dates: start: 20201124, end: 20201124
  2. CISPLATIN. [Suspect]
     Active Substance: CISPLATIN
     Indication: CERVIX CARCINOMA
     Route: 042
     Dates: start: 20200630, end: 20200630
  3. SODIUM POTASSIUM MAGNESIUM CALCIUM AND GLUCOSE INJECTION [Concomitant]
     Active Substance: CALCIUM GLUCONATE\DEXTROSE\MAGNESIUM CHLORIDE\POTASSIUM CHLORIDE\SODIUM ACETATE\SODIUM CHLORIDE\TRISODIUM CITRATE DIHYDRATE
     Indication: ELECTROCUTION
     Dosage: 500.0ML ONCE/SINGLE ADMINISTRATION
     Route: 042
     Dates: start: 20200630, end: 20200630
  4. POTASSIUM CHLORIDE INJECTION [Concomitant]
     Active Substance: POTASSIUM CHLORIDE
     Indication: ELECTROCUTION
     Dosage: 1.5G ONCE/SINGLE ADMINISTRATION
     Route: 042
     Dates: start: 20200707, end: 20200707
  5. METRONIDAZOLE,VITAMIN E AND TOTAL GINSENOSID OF GINSENG STEMS AND L... [Concomitant]
     Indication: CERVIX CARCINOMA
     Route: 067
     Dates: start: 20200604, end: 20200715
  6. METRONIDAZOLE,VITAMIN E AND TOTAL GINSENOSID OF GINSENG STEMS AND L... [Concomitant]
     Indication: INFECTION PROPHYLAXIS
     Route: 067
     Dates: start: 20200604, end: 20200715
  7. RECOMBINANT HUMAN GRANULOCYTE COLONY?STIMULATING FACTOR INJECTION [Concomitant]
     Indication: WHITE BLOOD CELL COUNT DECREASED
     Dosage: 300UG/INHAL DAILY
     Route: 058
     Dates: start: 20200730, end: 20200804
  8. RECOMBINANT HUMAN GRANULOCYTE COLONY?STIMULATING FACTOR INJECTION [Concomitant]
     Indication: NEUTROPHIL COUNT
     Dosage: 300UG/INHAL DAILY
     Route: 058
     Dates: start: 20200730, end: 20200804
  9. SODIUM POTASSIUM MAGNESIUM CALCIUN AND GLUCOSE INJECTION [Concomitant]
     Indication: ELECTROCUTION
     Dosage: 500.0ML ONCE/SINGLE ADMINISTRATION
     Route: 042
     Dates: start: 20200727, end: 20200727
  10. PIPERACILLIN SODIUM AND TAZOBACTAM SODIUM FOR INJECTION [Concomitant]
     Indication: INFECTION
     Route: 042
     Dates: start: 20200730, end: 20200805
  11. HYDROLYSATE [Concomitant]
     Indication: ANAEMIA
  12. DURVALUMAB. [Suspect]
     Active Substance: DURVALUMAB
     Indication: CERVIX CARCINOMA
     Route: 042
     Dates: start: 20201224, end: 20201224
  13. PALONOSETRON HYDROCHLORIDE INJECTION [Concomitant]
     Active Substance: PALONOSETRON HYDROCHLORIDE
     Indication: NAUSEA
     Dosage: 250.0UG/INHAL ONCE/SINGLE ADMINISTRATION
     Route: 042
     Dates: start: 20200714, end: 20200714
  14. RECOMBINANT HUMAN GRANULOCYTE STIMULATING FACTOR INJECTION [Concomitant]
     Indication: WHITE BLOOD CELL COUNT DECREASED
     Dosage: 300UG/INHAL DAILY
     Route: 058
     Dates: start: 20200711, end: 20200712
  15. RECOMBINANT HUMAN GRANULOCYTE COLONY?STIMULATING FACTOR INJECTION [Concomitant]
     Indication: WHITE BLOOD CELL COUNT DECREASED
     Dosage: 300UG/INHAL DAILY
     Route: 058
     Dates: start: 20200718, end: 20200719
  16. SODIUM POTASSIUM MAGNESIUM CALCIUN AND GLUCOSE INJECTION [Concomitant]
     Indication: ELECTROCUTION
     Dosage: 500.0ML ONCE/SINGLE ADMINISTRATION
     Route: 042
     Dates: start: 20200724, end: 20200724
  17. DURVALUMAB. [Suspect]
     Active Substance: DURVALUMAB
     Indication: CERVIX CARCINOMA
     Route: 042
     Dates: start: 20200806, end: 20200806
  18. DURVALUMAB. [Suspect]
     Active Substance: DURVALUMAB
     Indication: CERVIX CARCINOMA
     Route: 042
     Dates: start: 20210121, end: 20210121
  19. DURVALUMAB. [Suspect]
     Active Substance: DURVALUMAB
     Indication: CERVIX CARCINOMA
     Route: 042
     Dates: start: 20210219, end: 20210219
  20. DURVALUMAB. [Suspect]
     Active Substance: DURVALUMAB
     Indication: CERVIX CARCINOMA
     Route: 042
     Dates: start: 20210528, end: 20210528
  21. SODIUM POTASSIUM MAGNESIUM CALCIUM AND GLUCOSE INJECTION [Concomitant]
     Active Substance: CALCIUM GLUCONATE\DEXTROSE\MAGNESIUM CHLORIDE\POTASSIUM CHLORIDE\SODIUM ACETATE\SODIUM CHLORIDE\TRISODIUM CITRATE DIHYDRATE
     Indication: ELECTROCUTION
     Dosage: 500.0ML ONCE/SINGLE ADMINISTRATION
     Route: 042
     Dates: start: 20200714, end: 20200714
  22. PALONOSETRON HYDROCHLORIDE INJECTION [Concomitant]
     Active Substance: PALONOSETRON HYDROCHLORIDE
     Indication: NAUSEA
     Dosage: 250.0UG/INHAL ONCE/SINGLE ADMINISTRATION
     Route: 042
     Dates: start: 20200707, end: 20200707
  23. ONDANSETRON HYDROCHLORIDE TABLETS [Concomitant]
     Active Substance: ONDANSETRON HYDROCHLORIDE
     Indication: NAUSEA
     Route: 048
     Dates: start: 20200730, end: 20200808
  24. DURVALUMAB. [Suspect]
     Active Substance: DURVALUMAB
     Indication: CERVIX CARCINOMA
     Route: 042
     Dates: start: 20201028, end: 20201028
  25. CISPLATIN. [Suspect]
     Active Substance: CISPLATIN
     Indication: CERVIX CARCINOMA
     Route: 042
     Dates: start: 20200707, end: 20200707
  26. SODIUM POTASSIUM MAGNESIUM CALCIUM AND GLUCOSE INJECTION [Concomitant]
     Active Substance: CALCIUM GLUCONATE\DEXTROSE\MAGNESIUM CHLORIDE\POTASSIUM CHLORIDE\SODIUM ACETATE\SODIUM CHLORIDE\TRISODIUM CITRATE DIHYDRATE
     Indication: ELECTROLYTE SUBSTITUTION THERAPY
     Dosage: 500.0ML ONCE/SINGLE ADMINISTRATION
     Route: 042
     Dates: start: 20200630, end: 20200630
  27. RECOMBINANT HUMAN GRANULOCYTE COLONY?STIMULATING FACTOR INJECTION [Concomitant]
     Indication: WHITE BLOOD CELL COUNT DECREASED
     Dosage: 300UG/INHAL DAILY
     Route: 058
     Dates: start: 20200727, end: 20200728
  28. GLUCOSE AND SODIUM CHLORIDE INJECTION [Concomitant]
     Indication: ELECTROCUTION
     Dosage: 500.0ML ONCE/SINGLE ADMINISTRATION
     Route: 042
     Dates: start: 20200724, end: 20200724
  29. SODIUM POTASSIUM MAGNESIUM CALCIUN AND GLUCOSE INJECTION [Concomitant]
     Indication: SUPPORTIVE CARE
     Dosage: 500.0ML ONCE/SINGLE ADMINISTRATION
     Route: 042
     Dates: start: 20200727, end: 20200727
  30. SHENGXUEBAO MIXTURE [Concomitant]
     Indication: ANAEMIA
     Route: 048
     Dates: start: 20200727, end: 20200902
  31. DURVALUMAB. [Suspect]
     Active Substance: DURVALUMAB
     Indication: CERVIX CARCINOMA
     Route: 042
     Dates: start: 20210428, end: 20210428
  32. CISPLATIN. [Suspect]
     Active Substance: CISPLATIN
     Indication: CERVIX CARCINOMA
     Route: 042
     Dates: start: 20200714, end: 20200714
  33. SODIUM POTASSIUM MAGNESIUM CALCIUM AND GLUCOSE INJECTION [Concomitant]
     Active Substance: CALCIUM GLUCONATE\DEXTROSE\MAGNESIUM CHLORIDE\POTASSIUM CHLORIDE\SODIUM ACETATE\SODIUM CHLORIDE\TRISODIUM CITRATE DIHYDRATE
     Indication: ELECTROLYTE SUBSTITUTION THERAPY
     Dosage: 500.0ML ONCE/SINGLE ADMINISTRATION
     Route: 042
     Dates: start: 20200707, end: 20200707
  34. POTASSIUM CHLORIDE INJECTION [Concomitant]
     Active Substance: POTASSIUM CHLORIDE
     Indication: ELECTROCUTION
     Dosage: 1.5G ONCE/SINGLE ADMINISTRATION
     Route: 042
     Dates: start: 20200630, end: 20200630
  35. ONDANSETRON HYDROCHLORIDE. [Concomitant]
     Active Substance: ONDANSETRON HYDROCHLORIDE
     Indication: NAUSEA
     Route: 048
     Dates: start: 20200630, end: 20200709
  36. RECOMBINANT HUMAN GRANULOCYTE COLONY?STIMULATING FACTOR INJECTION [Concomitant]
     Indication: NEUTROPHIL COUNT
     Dosage: 300UG/INHAL DAILY
     Route: 058
     Dates: start: 20200718, end: 20200719
  37. SODIUM POTASSIUM MAGNESIUM CALCIUN AND GLUCOSE INJECTION [Concomitant]
     Indication: SUPPORTIVE CARE
     Dosage: 500.0ML ONCE/SINGLE ADMINISTRATION
     Route: 042
     Dates: start: 20200724, end: 20200724
  38. CISPLATIN. [Suspect]
     Active Substance: CISPLATIN
     Indication: CERVIX CARCINOMA
     Route: 042
     Dates: start: 20200806, end: 20200806
  39. CISPLATIN. [Suspect]
     Active Substance: CISPLATIN
     Indication: CERVIX CARCINOMA
     Route: 042
     Dates: start: 20200820, end: 20200820
  40. POTASSIUM CHLORIDE INJECTION [Concomitant]
     Active Substance: POTASSIUM CHLORIDE
     Indication: ELECTROCUTION
     Dosage: 1.5G ONCE/SINGLE ADMINISTRATION
     Route: 042
     Dates: start: 20200724, end: 20200724
  41. PALONOSETRON HYDROCHLORIDE INJECTION [Concomitant]
     Active Substance: PALONOSETRON HYDROCHLORIDE
     Indication: PROPHYLAXIS OF NAUSEA AND VOMITING
     Dosage: 250.0UG/INHAL ONCE/SINGLE ADMINISTRATION
     Route: 042
     Dates: start: 20200707, end: 20200707
  42. PALONOSETRON HYDROCHLORIDE INJECTION [Concomitant]
     Active Substance: PALONOSETRON HYDROCHLORIDE
     Indication: PROPHYLAXIS OF NAUSEA AND VOMITING
     Dosage: 250.0UG/INHAL ONCE/SINGLE ADMINISTRATION
     Route: 042
     Dates: start: 20200714, end: 20200714
  43. RECOMBINANT HUMAN GRANULOCYTE COLONY?STIMULATING FACTOR INJECTION [Concomitant]
     Indication: WHITE BLOOD CELL COUNT DECREASED
     Dosage: 300UG/INHAL DAILY
     Route: 058
     Dates: start: 20200722, end: 20200723
  44. CAFFEIC ACID TABLETS [Concomitant]
     Indication: PLATELET COUNT DECREASED
     Route: 048
     Dates: start: 20200725, end: 20200902
  45. COENZYME COMPLEX FOR INJECTION [Concomitant]
     Indication: WHITE BLOOD CELL COUNT DECREASED
     Dosage: 200.0 OTHER EVERY DAY
     Route: 042
     Dates: start: 20200727, end: 20200727
  46. DURVALUMAB. [Suspect]
     Active Substance: DURVALUMAB
     Indication: CERVIX CARCINOMA
     Route: 042
     Dates: start: 20200630, end: 20200630
  47. DURVALUMAB. [Suspect]
     Active Substance: DURVALUMAB
     Indication: CERVIX CARCINOMA
     Route: 042
     Dates: start: 20200902, end: 20200902
  48. SODIUM POTASSIUM MAGNESIUM CALCIUM AND GLUCOSE INJECTION [Concomitant]
     Active Substance: CALCIUM GLUCONATE\DEXTROSE\MAGNESIUM CHLORIDE\POTASSIUM CHLORIDE\SODIUM ACETATE\SODIUM CHLORIDE\TRISODIUM CITRATE DIHYDRATE
     Indication: ELECTROCUTION
     Dosage: 500.0ML ONCE/SINGLE ADMINISTRATION
     Route: 042
     Dates: start: 20200707, end: 20200707
  49. RECOMBINANT HUMAN GRANULOCYTE COLONY?STIMULATING FACTOR INJECTION [Concomitant]
     Indication: NEUTROPHIL COUNT
     Dosage: 300UG/INHAL DAILY
     Route: 058
     Dates: start: 20200722, end: 20200723
  50. RECOMBINANT HUMAN INTERLEUKIN?11 FOR INJECTION [Concomitant]
     Indication: PLATELET COUNT DECREASED
     Route: 058
     Dates: start: 20200724, end: 20200726
  51. VITAMIN C INJECTION [Concomitant]
     Active Substance: ASCORBIC ACID
     Indication: VITAMIN SUPPLEMENTATION
     Route: 042
     Dates: start: 20200727, end: 20200727
  52. COENZYME COMPLEX FOR INJECTION [Concomitant]
     Indication: WHITE BLOOD CELL COUNT
     Dosage: 200.0 OTHER EVERY DAY
     Route: 042
     Dates: start: 20200727, end: 20200727
  53. ONDANSETRON HYDROCHLORIDE TABLETS [Concomitant]
     Active Substance: ONDANSETRON HYDROCHLORIDE
     Indication: PROPHYLAXIS
     Route: 048
     Dates: start: 20200730, end: 20200808
  54. DURVALUMAB. [Suspect]
     Active Substance: DURVALUMAB
     Indication: CERVIX CARCINOMA
     Route: 042
     Dates: start: 20200928, end: 20200928
  55. DURVALUMAB. [Suspect]
     Active Substance: DURVALUMAB
     Indication: CERVIX CARCINOMA
     Route: 042
     Dates: start: 20210319, end: 20210319
  56. SODIUM POTASSIUM MAGNESIUM CALCIUM AND GLUCOSE INJECTION [Concomitant]
     Active Substance: CALCIUM GLUCONATE\DEXTROSE\MAGNESIUM CHLORIDE\POTASSIUM CHLORIDE\SODIUM ACETATE\SODIUM CHLORIDE\TRISODIUM CITRATE DIHYDRATE
     Indication: ELECTROLYTE SUBSTITUTION THERAPY
     Dosage: 500.0ML ONCE/SINGLE ADMINISTRATION
     Route: 042
     Dates: start: 20200714, end: 20200714
  57. POTASSIUM CHLORIDE INJECTION [Concomitant]
     Active Substance: POTASSIUM CHLORIDE
     Indication: ELECTROCUTION
     Dosage: 1.5G ONCE/SINGLE ADMINISTRATION
     Route: 042
     Dates: start: 20200714, end: 20200714
  58. RECOMBINANT HUMAN GRANULOCYTE COLONY?STIMULATING FACTOR INJECTION [Concomitant]
     Indication: NEUTROPHIL COUNT
     Dosage: 300UG/INHAL DAILY
     Route: 058
     Dates: start: 20200727, end: 20200728
  59. SHENGBAI ORAL LIQUID [Concomitant]
     Indication: WHITE BLOOD CELL COUNT
     Route: 048
     Dates: start: 20200726, end: 20200902
  60. LYSINE ACETYLSALICYLATE FOR INJECTION [Concomitant]
     Indication: HYPOTHERMIA
     Dosage: 0.9G ONCE/SINGLE ADMINISTRATION
     Route: 030
     Dates: start: 20200730, end: 20200730

REACTIONS (2)
  - Myelosuppression [Recovered/Resolved]
  - Urinary tract infection [Recovered/Resolved]

NARRATIVE: CASE EVENT DATE: 20200727
